FAERS Safety Report 23692628 (Version 1)
Quarter: 2024Q1

REPORT INFORMATION
  Report Type: Spontaneous
  Country: US (occurrence: None)
  Receive Date: 20240330
  Receipt Date: 20240330
  Transmission Date: 20240410
  Serious: No
  Sender: FDA-Public Use
  Company Number: None

PATIENT
  Sex: Male

DRUGS (11)
  1. RINVOQ [Suspect]
     Active Substance: UPADACITINIB
     Indication: Dermatitis atopic
     Dosage: FREQUENCY : DAILY;?
     Route: 048
     Dates: start: 20240229
  2. ALBUTEROL [Concomitant]
     Active Substance: ALBUTEROL
  3. BENADRYL [Concomitant]
     Active Substance: DIPHENHYDRAMINE HYDROCHLORIDE
  4. BETAMETH VAL [Concomitant]
  5. DUPIXENT [Concomitant]
     Active Substance: DUPILUMAB
  6. EPIPEN [Concomitant]
  7. FLOVENT [Concomitant]
  8. FLUOCIN ACET [Concomitant]
  9. HUMIRA [Concomitant]
     Active Substance: ADALIMUMAB
  10. RISPERIDONE [Concomitant]
  11. STELARA [Concomitant]

REACTIONS (2)
  - Herpes zoster [None]
  - Pain in extremity [None]
